FAERS Safety Report 17189053 (Version 1)
Quarter: 2019Q4

REPORT INFORMATION
  Report Type: Spontaneous
  Country: SE (occurrence: SE)
  Receive Date: 20191223
  Receipt Date: 20191223
  Transmission Date: 20200122
  Serious: Yes (Hospitalization)
  Sender: FDA-Public Use
  Company Number: SE-TEVA-2019-SE-1155720

PATIENT
  Age: 26 Year
  Sex: Female

DRUGS (3)
  1. OXASCAND 15 MG TABLETT [Suspect]
     Active Substance: OXAZEPAM
     Dosage: ^EMPTY MAPS^, 15X15 MG
     Route: 048
     Dates: start: 20180830, end: 20180830
  2. IMOVANE [Suspect]
     Active Substance: ZOPICLONE
     Dosage: ^EMPTY MAPS^, 10X5 MG
     Route: 048
     Dates: start: 20180830, end: 20180830
  3. PROPAVAN [Suspect]
     Active Substance: PROPIOMAZINE
     Dosage: ^EMPTY MAPS^, 20X25 MG
     Route: 048
     Dates: start: 20180830, end: 20180830

REACTIONS (5)
  - Intentional overdose [Unknown]
  - Somnolence [Unknown]
  - Dizziness [Unknown]
  - Intentional self-injury [Unknown]
  - Depressed level of consciousness [Unknown]

NARRATIVE: CASE EVENT DATE: 20180830
